FAERS Safety Report 10569841 (Version 1)
Quarter: 2014Q4

REPORT INFORMATION
  Report Type: Spontaneous
  Country: ES (occurrence: ES)
  Receive Date: 20141107
  Receipt Date: 20141107
  Transmission Date: 20150529
  Serious: Yes (Other)
  Sender: FDA-Public Use
  Company Number: ES-BRISTOL-MYERS SQUIBB COMPANY-21545074

PATIENT
  Age: 56 Year
  Sex: Female

DRUGS (2)
  1. FORXIGA [Suspect]
     Active Substance: DAPAGLIFLOZIN
     Indication: OBESITY
     Dosage: FILM COATED TABS.28 TABLETS
     Route: 048
     Dates: start: 20140409, end: 20140925
  2. ENALAPRIL MALEATE + HCTZ [Concomitant]

REACTIONS (3)
  - Renal neoplasm [Unknown]
  - Acute kidney injury [Recovered/Resolved]
  - Anaemia [Recovering/Resolving]

NARRATIVE: CASE EVENT DATE: 201405
